FAERS Safety Report 23787347 (Version 3)
Quarter: 2024Q2

REPORT INFORMATION
  Report Type: Spontaneous
  Country: JP (occurrence: JP)
  Receive Date: 20240426
  Receipt Date: 20240618
  Transmission Date: 20240716
  Serious: Yes (Other)
  Sender: FDA-Public Use
  Company Number: JP-ORGANON-O2404JPN003100

PATIENT
  Age: 4 Decade
  Sex: Female

DRUGS (15)
  1. DESLORATADINE [Suspect]
     Active Substance: DESLORATADINE
     Dosage: 5 MILLIGRAM
     Route: 048
  2. SOFPIRONIUM BROMIDE [Suspect]
     Active Substance: SOFPIRONIUM BROMIDE
     Dosage: OPTIMAL DOSE, HS
     Route: 058
     Dates: start: 20230703, end: 20240418
  3. SOFPIRONIUM BROMIDE [Suspect]
     Active Substance: SOFPIRONIUM BROMIDE
     Dosage: OPTIMAL DOSE, HS
     Route: 058
     Dates: start: 2024
  4. AMITRIPTYLINE HYDROCHLORIDE [Suspect]
     Active Substance: AMITRIPTYLINE HYDROCHLORIDE
     Indication: Migraine
     Dosage: UNK
     Route: 065
  5. LOXOPROFEN SODIUM DIHYDRATE [Suspect]
     Active Substance: LOXOPROFEN SODIUM DIHYDRATE
     Indication: Migraine
     Dosage: UNK
     Route: 065
  6. RIVOTRIL [Suspect]
     Active Substance: CLONAZEPAM
     Indication: Migraine
     Dosage: UNK
     Route: 065
  7. TOFISOPAM [Suspect]
     Active Substance: TOFISOPAM
     Indication: Migraine
     Dosage: UNK
     Route: 065
  8. VALPROATE SODIUM [Suspect]
     Active Substance: VALPROATE SODIUM
     Indication: Migraine
     Dosage: UNK
     Route: 065
  9. VITAMIN B [Suspect]
     Active Substance: VITAMIN B
     Indication: Migraine
     Dosage: UNK
     Route: 065
  10. LOMERIZINE HYDROCHLORIDE [Suspect]
     Active Substance: LOMERIZINE HYDROCHLORIDE
     Indication: Migraine
     Dosage: UNK
     Route: 065
  11. SODIUM FERROUS CITRATE [Suspect]
     Active Substance: SODIUM FERROUS CITRATE
     Indication: Migraine
     Dosage: UNK
     Route: 065
  12. ISOSORBIDE [Suspect]
     Active Substance: ISOSORBIDE
     Indication: Meniere^s disease
     Dosage: UNK
     Route: 065
  13. ADETPHOS [Suspect]
     Active Substance: ADENOSINE TRIPHOSPHATE
     Indication: Meniere^s disease
     Dosage: UNK
     Route: 065
  14. METHYLCOBALAMIN [Suspect]
     Active Substance: METHYLCOBALAMIN
     Indication: Meniere^s disease
     Dosage: UNK
     Route: 065
  15. HERBALS [Suspect]
     Active Substance: HERBALS
     Indication: Meniere^s disease
     Dosage: UNK
     Route: 065

REACTIONS (1)
  - Urinary retention [Recovered/Resolved]

NARRATIVE: CASE EVENT DATE: 20240411
